FAERS Safety Report 20098226 (Version 4)
Quarter: 2022Q1

REPORT INFORMATION
  Report Type: Spontaneous
  Country: BR (occurrence: BR)
  Receive Date: 20211122
  Receipt Date: 20220203
  Transmission Date: 20220423
  Serious: Yes (Hospitalization, Other)
  Sender: FDA-Public Use
  Company Number: BR-GLAXOSMITHKLINE-BR2021AMR232555

PATIENT
  Age: 48 Year
  Sex: Female

DRUGS (6)
  1. NUCALA [Suspect]
     Active Substance: MEPOLIZUMAB
     Indication: Asthma
     Dosage: 100 MG/ML
     Route: 042
     Dates: start: 20210225, end: 20211123
  2. SPIRIVA [Concomitant]
     Active Substance: TIOTROPIUM BROMIDE MONOHYDRATE
     Indication: Product used for unknown indication
     Dosage: UNK
  3. BECLOMETHASONE\FORMOTEROL [Concomitant]
     Active Substance: BECLOMETHASONE\FORMOTEROL
     Indication: Product used for unknown indication
     Dosage: UNK
  4. ALBUTEROL [Concomitant]
     Active Substance: ALBUTEROL
     Indication: Product used for unknown indication
     Dosage: UNK
  5. BECLOMETHASONE DIPROPIONATE [Concomitant]
     Active Substance: BECLOMETHASONE DIPROPIONATE
     Indication: Product used for unknown indication
     Dosage: UNK
  6. PREDNISONE [Concomitant]
     Active Substance: PREDNISONE
     Indication: Product used for unknown indication
     Dosage: UNK

REACTIONS (21)
  - Spinal fracture [Recovered/Resolved]
  - Influenza [Recovered/Resolved]
  - Pneumonia [Recovered/Resolved]
  - Fall [Unknown]
  - COVID-19 [Recovered/Resolved]
  - Asthmatic crisis [Recovered/Resolved]
  - Haemorrhage [Recovered/Resolved]
  - Osteoporosis [Unknown]
  - Leiomyoma [Recovered/Resolved]
  - Nodule [Recovered/Resolved]
  - Uterine polyp [Recovered/Resolved]
  - Pain [Not Recovered/Not Resolved]
  - Post lumbar puncture syndrome [Recovered/Resolved]
  - Fatigue [Not Recovered/Not Resolved]
  - Spinal anaesthesia [Recovered/Resolved]
  - Headache [Not Recovered/Not Resolved]
  - Teeth brittle [Not Recovered/Not Resolved]
  - Drug effective for unapproved indication [Unknown]
  - Inappropriate schedule of product administration [Unknown]
  - Product dose omission issue [Unknown]
  - Intercepted product storage error [Unknown]

NARRATIVE: CASE EVENT DATE: 20210429
